FAERS Safety Report 10032607 (Version 1)
Quarter: 2014Q1

REPORT INFORMATION
  Report Type: Spontaneous
  Country: US (occurrence: US)
  Receive Date: 20140324
  Receipt Date: 20140324
  Transmission Date: 20141002
  Serious: Yes (Hospitalization)
  Sender: FDA-Public Use
  Company Number: US-GLAXOSMITHKLINE-A1065153A

PATIENT
  Age: 86 Year
  Sex: Female

DRUGS (15)
  1. ADVAIR HFA [Suspect]
     Indication: ASTHMA
     Dosage: 2PUFF TWICE PER DAY
     Route: 055
     Dates: start: 2011
  2. AMLODIPINE [Concomitant]
  3. ASPIRIN [Concomitant]
  4. LIPITOR [Concomitant]
  5. CLONIDINE [Concomitant]
  6. ESTRACE [Concomitant]
  7. TRICOR [Concomitant]
  8. GLIMEPIRIDE [Concomitant]
  9. LORAZEPAM [Concomitant]
  10. FISH OIL [Concomitant]
  11. PRILOSEC [Concomitant]
  12. ZOFRAN [Concomitant]
  13. MIRALAX [Concomitant]
  14. XARELTO [Concomitant]
  15. TRAMADOL [Concomitant]

REACTIONS (3)
  - Investigation [Recovering/Resolving]
  - Cardiac pacemaker insertion [Recovering/Resolving]
  - Heart rate decreased [Recovering/Resolving]
